FAERS Safety Report 9763248 (Version 1)
Quarter: 2013Q4

REPORT INFORMATION
  Report Type: Spontaneous
  Country: US (occurrence: US)
  Receive Date: 20131216
  Receipt Date: 20131216
  Transmission Date: 20140711
  Serious: No
  Sender: FDA-Public Use
  Company Number: US-BIOGENIDEC-2013BI104011

PATIENT
  Age: 41 Year
  Sex: Female

DRUGS (8)
  1. TECFIDERA [Suspect]
     Indication: MULTIPLE SCLEROSIS
     Route: 048
     Dates: start: 20131008
  2. TECFIDERA [Suspect]
     Indication: MULTIPLE SCLEROSIS
     Route: 048
     Dates: start: 20131018
  3. BACLOFEN [Concomitant]
  4. NEURONTIN [Concomitant]
  5. PROZAC [Concomitant]
  6. AMITRIPTYLINE [Concomitant]
  7. TOPAMAX [Concomitant]
  8. VITAMIN D [Concomitant]

REACTIONS (5)
  - Muscle spasms [Recovered/Resolved]
  - Underdose [Not Recovered/Not Resolved]
  - Diarrhoea [Recovered/Resolved]
  - Hot flush [Recovered/Resolved]
  - Pruritus [Recovered/Resolved]
